FAERS Safety Report 11812183 (Version 3)
Quarter: 2019Q1

REPORT INFORMATION
  Report Type: Spontaneous
  Country: US (occurrence: US)
  Receive Date: 20151208
  Receipt Date: 20190228
  Transmission Date: 20190417
  Serious: Yes (Hospitalization, Other)
  Sender: FDA-Public Use
  Company Number: US-TEVA-616458USA

PATIENT
  Age: 28 Year
  Sex: Male

DRUGS (12)
  1. BACTRIM [Suspect]
     Active Substance: SULFAMETHOXAZOLE\TRIMETHOPRIM
     Indication: PROPHYLAXIS
     Dosage: MONDAY, WEDNESDAY AND FRIDAY
     Route: 065
     Dates: start: 20130909
  2. INFLUENZA VACCINE [Concomitant]
     Active Substance: INFLUENZA VIRUS VACCINE
  3. TACROLIMUS. [Concomitant]
     Active Substance: TACROLIMUS
     Indication: IMMUNOSUPPRESSION
  4. DASATINIB. [Interacting]
     Active Substance: DASATINIB
     Indication: ACUTE LEUKAEMIA
     Dosage: 100MG DAILY
     Dates: start: 20130909
  5. HAEMOPHILUS INFLUENZAE TYPE B CONJUGATE VACCINE [Concomitant]
  6. AMLODIPINE [Concomitant]
     Active Substance: AMLODIPINE BESYLATE
     Dosage: 5MG DAILY
     Dates: start: 20130909
  7. HEPATITIS B VACCINE [Concomitant]
     Active Substance: HEPATITIS B VIRUS VACCINE
  8. INACTIVATED POLIOMYELITIS VACCINE [Concomitant]
  9. PANTOPRAZOLE [Concomitant]
     Active Substance: PANTOPRAZOLE
     Dosage: 40MG DAILY
     Dates: start: 20130909
  10. DASATINIB. [Interacting]
     Active Substance: DASATINIB
     Indication: ACUTE LEUKAEMIA
     Dosage: 75MG DAILY
     Route: 065
  11. VALACICLOVIR [Concomitant]
     Active Substance: VALACYCLOVIR HYDROCHLORIDE
     Indication: PROPHYLAXIS
     Dates: start: 20130909
  12. DIPHTHERIA-TETANUS-ACELLULAR PERTUSSIS (DTAP) VACCINE [Concomitant]

REACTIONS (2)
  - Drug interaction [Recovered/Resolved]
  - Rhabdomyolysis [Recovered/Resolved]

NARRATIVE: CASE EVENT DATE: 20130909
